FAERS Safety Report 7743905-6 (Version None)
Quarter: 2011Q3

REPORT INFORMATION
  Report Type: 
  Country: None (occurrence: None)
  Receive Date: 20110912
  Receipt Date: 20110906
  Transmission Date: 20111222
  Serious: Yes (Other)
  Sender: FDA-Public Use
  Company Number: US-GLAXOSMITHKLINE-A0944120A

PATIENT
  Sex: Male

DRUGS (2)
  1. UNKNOWN [Concomitant]
  2. VOTRIENT [Suspect]
     Indication: PRODUCT USED FOR UNKNOWN INDICATION
     Dosage: 800MG UNKNOWN
     Route: 048
     Dates: start: 20060601

REACTIONS (6)
  - DIARRHOEA [None]
  - DYSPEPSIA [None]
  - PALMAR-PLANTAR ERYTHRODYSAESTHESIA SYNDROME [None]
  - COUGH [None]
  - BLOOD PRESSURE INCREASED [None]
  - METASTASES TO LUNG [None]
